FAERS Safety Report 17048873 (Version 5)
Quarter: 2020Q4

REPORT INFORMATION
  Report Type: Spontaneous
  Country: US (occurrence: US)
  Receive Date: 20191119
  Receipt Date: 20201218
  Transmission Date: 20210113
  Serious: No
  Sender: FDA-Public Use
  Company Number: US-SA-2019SA313505

PATIENT

DRUGS (1)
  1. DUPIXENT [Suspect]
     Active Substance: DUPILUMAB
     Indication: NASAL POLYPS
     Dosage: 300 MG, QOW
     Route: 058
     Dates: start: 20190925

REACTIONS (5)
  - Nausea [Recovered/Resolved]
  - Insomnia [Unknown]
  - Diarrhoea [Recovered/Resolved]
  - Blood sodium decreased [Recovered/Resolved]
  - Anger [Unknown]
